FAERS Safety Report 20199320 (Version 1)
Quarter: 2021Q4

REPORT INFORMATION
  Report Type: Spontaneous
  Country: US (occurrence: US)
  Receive Date: 20211217
  Receipt Date: 20211217
  Transmission Date: 20220304
  Serious: Yes (Other)
  Sender: FDA-Public Use
  Company Number: US-009507513-2112USA003952

PATIENT
  Age: 73 Year
  Sex: Male

DRUGS (1)
  1. STEGLATRO [Suspect]
     Active Substance: ERTUGLIFLOZIN PIDOLATE
     Dosage: ONE TABLET ONCE DAILY

REACTIONS (1)
  - Cardiac operation [Unknown]

NARRATIVE: CASE EVENT DATE: 20210724
